FAERS Safety Report 19183082 (Version 1)
Quarter: 2021Q2

REPORT INFORMATION
  Report Type: Spontaneous
  Country: CN (occurrence: CN)
  Receive Date: 20210426
  Receipt Date: 20210426
  Transmission Date: 20210717
  Serious: Yes (Other)
  Sender: FDA-Public Use
  Company Number: CN-BAXTER-2021BAX008454

PATIENT
  Age: 69 Year
  Sex: Male
  Weight: 45 kg

DRUGS (8)
  1. HOLOXAN [Suspect]
     Active Substance: IFOSFAMIDE
     Indication: PENILE CANCER
     Dosage: IFOSFAMIDE 2G + 0.9% SODIUM CHLORIDE 500 ML
     Route: 041
     Dates: start: 20210324, end: 20210327
  2. 0.9% SODIUM CHLORIDE INJECTION [Suspect]
     Active Substance: SODIUM CHLORIDE
     Indication: MEDICATION DILUTION
     Dosage: IFOSFAMIDE 2G + 0.9% SODIUM CHLORIDE 500 ML
     Route: 041
     Dates: start: 20210324, end: 20210327
  3. PACLITAXEL. [Suspect]
     Active Substance: PACLITAXEL
     Dosage: PACLITAXEL  30 MG + 0.9% SODIUM CHLORIDE 100 ML
     Route: 041
     Dates: start: 20210324, end: 20210327
  4. 0.9% SODIUM CHLORIDE INJECTION [Suspect]
     Active Substance: SODIUM CHLORIDE
     Dosage: PACLITAXEL  220 MG + 0.9% SODIUM CHLORIDE 100 ML
     Route: 041
     Dates: start: 20210324, end: 20210327
  5. 0.9% SODIUM CHLORIDE INJECTION [Suspect]
     Active Substance: SODIUM CHLORIDE
     Dosage: NUOXIN 30 MG + 0.9 % SODIUM CHLORIDE 500 ML
     Route: 041
     Dates: start: 20210324, end: 20210327
  6. 0.9% SODIUM CHLORIDE INJECTION [Suspect]
     Active Substance: SODIUM CHLORIDE
     Dosage: PACLITAXEL  30 MG + 0.9% SODIUM CHLORIDE 100 ML
     Route: 041
     Dates: start: 20210324, end: 20210327
  7. PACLITAXEL. [Suspect]
     Active Substance: PACLITAXEL
     Indication: PENILE CANCER
     Dosage: PACLITAXEL  220 MG + 0.9% SODIUM CHLORIDE 100 ML
     Route: 041
     Dates: start: 20210324, end: 20210327
  8. NUOXIN [Suspect]
     Active Substance: CISPLATIN
     Indication: PENILE CANCER
     Dosage: NUOXIN 30 MG + 0.9 % SODIUM CHLORIDE 500 ML
     Route: 041
     Dates: start: 20210324, end: 20210327

REACTIONS (1)
  - Myelosuppression [Recovering/Resolving]

NARRATIVE: CASE EVENT DATE: 20210330
